FAERS Safety Report 25468845 (Version 2)
Quarter: 2025Q2

REPORT INFORMATION
  Report Type: Report from Study
  Country: ID (occurrence: ID)
  Receive Date: 20250623
  Receipt Date: 20250626
  Transmission Date: 20250717
  Serious: Yes (Death, Life-Threatening, Other)
  Sender: OTSUKA
  Company Number: ID-MMM-Otsuka-U738V6LS

PATIENT
  Age: 59 Year
  Sex: Male

DRUGS (1)
  1. TOLVAPTAN [Suspect]
     Active Substance: TOLVAPTAN
     Indication: Cardiac failure congestive
     Route: 048
     Dates: start: 20250112, end: 20250113

REACTIONS (7)
  - Acute coronary syndrome [Fatal]
  - Arrhythmia [Fatal]
  - Cardiogenic shock [Fatal]
  - Cardiac arrest [Fatal]
  - Atrial fibrillation [Unknown]
  - Ventricular tachycardia [Unknown]
  - Myocardial infarction [Unknown]

NARRATIVE: CASE EVENT DATE: 20250113
